FAERS Safety Report 5318546-0 (Version None)
Quarter: 2007Q2

REPORT INFORMATION
  Report Type: 
  Country: None (occurrence: None)
  Receive Date: 20070501
  Receipt Date: 20070417
  Transmission Date: 20071010
  Serious: Yes (Hospitalization)
  Sender: FDA-Public Use
  Company Number: KADN20070045

PATIENT
  Age: 53 Year
  Sex: Female
  Weight: 116.5744 kg

DRUGS (17)
  1. KADIAN [Suspect]
     Indication: BACK PAIN
     Dosage: 1 CAP DAILY PO
     Route: 048
     Dates: start: 20070124, end: 20070204
  2. MORPHINE SULFATE [Suspect]
     Indication: BREAKTHROUGH PAIN
     Dosage: 1/2-1 TAB Q4H PRN PO
     Route: 048
     Dates: start: 20070124
  3. ZANAFLEX [Concomitant]
  4. LYRICA [Concomitant]
  5. ZELNORM [Concomitant]
  6. TOPROL-XL [Concomitant]
  7. DIOVAN HCT [Concomitant]
  8. VYTORIN [Concomitant]
  9. ECOTRIN [Concomitant]
  10. OS-CAL [Concomitant]
  11. PREVACID [Concomitant]
  12. MOBIC [Concomitant]
  13. EFFEXOR XR [Concomitant]
  14. FEMHRT [Concomitant]
  15. XANAX [Concomitant]
  16. ZYRTEC [Concomitant]
  17. METOCLOPRAMIDE [Concomitant]

REACTIONS (5)
  - CONFUSIONAL STATE [None]
  - DISORIENTATION [None]
  - HYPOTENSION [None]
  - INTESTINAL PERFORATION [None]
  - RENAL FAILURE ACUTE [None]
